FAERS Safety Report 5087595-2 (Version None)
Quarter: 2006Q3

REPORT INFORMATION
  Report Type: 
  Country: None (occurrence: None)
  Receive Date: 20060727
  Receipt Date: 20060414
  Transmission Date: 20061208
  Serious: Yes (Other)
  Sender: FDA-Public Use
  Company Number: 2006047613

PATIENT
  Age: 67 Year
  Sex: 0

DRUGS (7)
  1. LYRICA [Suspect]
     Indication: BACK PAIN
     Dosage: 50 MG (25 MG, 2 IN 1 D), ORAL
     Route: 048
     Dates: start: 20060101
  2. NAPROXEN SODIUM [Concomitant]
  3. METFORMIN HCL [Concomitant]
  4. ZOCOR [Concomitant]
  5. LISINOPRIL [Concomitant]
  6. LASIX [Concomitant]
  7. GLIPIZIDE [Concomitant]

REACTIONS (3)
  - PAIN [None]
  - VISION BLURRED [None]
  - VISUAL DISTURBANCE [None]
